FAERS Safety Report 7293771-0 (Version None)
Quarter: 2011Q1

REPORT INFORMATION
  Report Type: 
  Country: None (occurrence: None)
  Receive Date: 20110215
  Receipt Date: 20110209
  Transmission Date: 20110831
  Serious: Yes (Other)
  Sender: FDA-Public Use
  Company Number: US-PFIZER INC-2010156953

PATIENT
  Sex: Female
  Weight: 77.098 kg

DRUGS (3)
  1. GEODON [Suspect]
     Indication: SCHIZOPHRENIA
  2. TYLENOL [Concomitant]
     Indication: SLEEP DISORDER
     Dosage: UNK
  3. GEODON [Suspect]
     Indication: BIPOLAR DISORDER
     Dosage: 200 MG, DAILY
     Route: 048
     Dates: start: 20060101, end: 20110201

REACTIONS (9)
  - ACTIVITIES OF DAILY LIVING IMPAIRED [None]
  - COLD SWEAT [None]
  - INSOMNIA [None]
  - HEART RATE INCREASED [None]
  - HEADACHE [None]
  - NERVOUSNESS [None]
  - FEAR [None]
  - ABDOMINAL PAIN UPPER [None]
  - MALAISE [None]
